FAERS Safety Report 8582624 (Version 5)
Quarter: 2015Q1

REPORT INFORMATION
  Report Type: Report from Study
  Country: CA (occurrence: CA)
  Receive Date: 20120529
  Receipt Date: 20150213
  Transmission Date: 20150721
  Serious: Yes (Hospitalization, Other)
  Sender: FDA-Public Use
  Company Number: PHHO2012CA004281

PATIENT
  Age: 5 Year
  Sex: Female
  Weight: 27.2 kg

DRUGS (14)
  1. MORPHINE [Concomitant]
     Active Substance: MORPHINE
     Indication: PAIN
     Dosage: 6 MG, Q4H,PRN
     Dates: start: 20090115
  2. PEDIAPRED [Concomitant]
     Active Substance: PREDNISOLONE SODIUM PHOSPHATE
     Dosage: 9 MG, QD
     Dates: start: 20070623
  3. METHOTREXATE [Concomitant]
     Active Substance: METHOTREXATE
     Indication: JUVENILE IDIOPATHIC ARTHRITIS
     Dosage: 10 MG, QW
     Dates: start: 20101130, end: 20120302
  4. TYLENOL-ACETAMINOPHENE [Concomitant]
     Indication: PYREXIA
     Dosage: 324 MG, Q4H
     Dates: start: 20120302
  5. FOLIC ACID. [Concomitant]
     Active Substance: FOLIC ACID
     Indication: VITAMIN SUPPLEMENTATION
     Dosage: 2.5 MG, QW
     Dates: start: 20071115
  6. CALCIA [Concomitant]
     Indication: SUPPLEMENTATION THERAPY
     Dosage: LEPLJ/2
     Dates: start: 20070718, end: 20120308
  7. PREVACID [Concomitant]
     Active Substance: LANSOPRAZOLE
     Indication: PROPHYLAXIS
     Dosage: 15 MG, DIE
     Dates: start: 20100915, end: 20120308
  8. CLAVULIN [Suspect]
     Active Substance: AMOXICILLIN\CLAVULANIC ACID
     Indication: SINUSITIS
     Dosage: 200 / 500 MG Q8H
     Route: 042
     Dates: start: 20120308, end: 20120308
  9. D-VI-SOL [Concomitant]
     Indication: VITAMIN SUPPLEMENTATION
     Dosage: 1 COMPTE GOUTTE/DAY
     Dates: start: 20070715
  10. VITAMIN D [Concomitant]
     Active Substance: CHOLECALCIFEROL
     Indication: SUPPLEMENTATION THERAPY
     Dosage: LEPLJ/2
     Dates: start: 20070718, end: 20120308
  11. NAPROXEN. [Concomitant]
     Active Substance: NAPROXEN
     Indication: ANTIINFLAMMATORY THERAPY
     Dosage: 200 MG, BID
     Route: 048
     Dates: start: 20120103, end: 20120308
  12. ACZ885 [Suspect]
     Active Substance: CANAKINUMAB
     Indication: JUVENILE IDIOPATHIC ARTHRITIS
     Dosage: 4 MG/KG, UNK
     Route: 058
     Dates: start: 20101019
  13. TYLENOL-ACETAMINOPHENE [Concomitant]
     Dosage: UNK
     Dates: start: 20120309
  14. M-ESLON [Concomitant]
     Active Substance: MORPHINE SULFATE
     Indication: JUVENILE IDIOPATHIC ARTHRITIS
     Dosage: 50 MG, QD
     Dates: start: 20090115

REACTIONS (3)
  - Impetigo [Recovered/Resolved]
  - Gastroenteritis [Recovered/Resolved]
  - Sinusitis [Recovered/Resolved]

NARRATIVE: CASE EVENT DATE: 20120308
